FAERS Safety Report 23024584 (Version 1)
Quarter: 2023Q4

REPORT INFORMATION
  Report Type: Spontaneous
  Country: JP (occurrence: JP)
  Receive Date: 20231004
  Receipt Date: 20231004
  Transmission Date: 20240110
  Serious: Yes (Other)
  Sender: FDA-Public Use
  Company Number: JP-AMGEN-JPNSP2023171575

PATIENT
  Age: 18 Year
  Sex: Male

DRUGS (1)
  1. AIMOVIG [Suspect]
     Active Substance: ERENUMAB-AOOE
     Indication: Product used for unknown indication
     Dosage: 70 MILLIGRAM
     Route: 058

REACTIONS (5)
  - Monoplegia [Not Recovered/Not Resolved]
  - Loss of consciousness [Recovered/Resolved]
  - Headache [Recovered/Resolved]
  - Injection site swelling [Recovered/Resolved]
  - Injection site pain [Recovered/Resolved]

NARRATIVE: CASE EVENT DATE: 20230101
